FAERS Safety Report 23750796 (Version 1)
Quarter: 2024Q2

REPORT INFORMATION
  Report Type: Spontaneous
  Country: US (occurrence: US)
  Receive Date: 20240417
  Receipt Date: 20240417
  Transmission Date: 20240716
  Serious: Yes (Other)
  Sender: FDA-Public Use
  Company Number: US-BRISTOL-MYERS SQUIBB COMPANY-2024-058810

PATIENT
  Age: 85 Year
  Sex: Male
  Weight: 74.84 kg

DRUGS (1)
  1. REVLIMID [Suspect]
     Active Substance: LENALIDOMIDE
     Indication: Hypercalcaemia
     Dosage: 2WKSON/1WKOFF
     Route: 048
     Dates: start: 20230801

REACTIONS (2)
  - Neutropenia [Unknown]
  - Off label use [Unknown]
